FAERS Safety Report 11100785 (Version 1)
Quarter: 2015Q2

REPORT INFORMATION
  Report Type: Spontaneous
  Country: PT (occurrence: PT)
  Receive Date: 20150508
  Receipt Date: 20150508
  Transmission Date: 20150821
  Serious: Yes (Hospitalization, Other)
  Sender: FDA-Public Use
  Company Number: PT-GLAXOSMITHKLINE INC.-PT2015GSK061986

PATIENT
  Age: 27 Year
  Sex: Female

DRUGS (7)
  1. STAVUDINE. [Suspect]
     Active Substance: STAVUDINE
     Indication: HIV INFECTION
     Dosage: UNK
  2. LOPINAVIR+RITONAVIR [Concomitant]
     Active Substance: LOPINAVIR\RITONAVIR
     Dosage: UNK
  3. LOPINAVIR+RITONAVIR [Concomitant]
     Active Substance: LOPINAVIR\RITONAVIR
     Dosage: UNK
  4. LAMIVUDINE. [Suspect]
     Active Substance: LAMIVUDINE
     Indication: VIRAL LOAD INCREASED
     Dosage: UNK
  5. STAVUDINE. [Suspect]
     Active Substance: STAVUDINE
     Indication: VIRAL LOAD INCREASED
     Dosage: UNK
  6. LOPINAVIR+RITONAVIR [Concomitant]
     Active Substance: LOPINAVIR\RITONAVIR
     Indication: HIV INFECTION
     Dosage: UNK
  7. LAMIVUDINE. [Suspect]
     Active Substance: LAMIVUDINE
     Indication: HIV INFECTION
     Dosage: UNK

REACTIONS (10)
  - Lactic acidosis [Recovered/Resolved]
  - Hepatic function abnormal [Recovered/Resolved]
  - Vomiting [Recovered/Resolved]
  - Nausea [Recovered/Resolved]
  - Gamma-glutamyltransferase increased [Recovered/Resolved]
  - Blood lactic acid increased [Recovered/Resolved]
  - Decreased appetite [Recovered/Resolved]
  - Blood lactate dehydrogenase increased [Recovered/Resolved]
  - Asthenia [Recovered/Resolved]
  - Blood bicarbonate decreased [Recovered/Resolved]
